FAERS Safety Report 24565881 (Version 1)
Quarter: 2024Q4

REPORT INFORMATION
  Report Type: Spontaneous
  Country: US (occurrence: US)
  Receive Date: 20241030
  Receipt Date: 20241030
  Transmission Date: 20250115
  Serious: Yes (Other)
  Sender: NOVARTIS
  Company Number: US-002147023-NVSC2024US210876

PATIENT
  Age: 55 Year
  Sex: Female

DRUGS (1)
  1. SCEMBLIX [Suspect]
     Active Substance: ASCIMINIB HYDROCHLORIDE
     Indication: Adverse drug reaction
     Dosage: 80 MG
     Route: 065
     Dates: start: 20240910, end: 20241023

REACTIONS (1)
  - Lipase increased [Not Recovered/Not Resolved]
